FAERS Safety Report 23673695 (Version 1)
Quarter: 2024Q1

REPORT INFORMATION
  Report Type: Spontaneous
  Country: DE (occurrence: DE)
  Receive Date: 20240326
  Receipt Date: 20240326
  Transmission Date: 20240410
  Serious: Yes (Hospitalization, Other)
  Sender: FDA-Public Use
  Company Number: DE-MALLINCKRODT-MNK202401970

PATIENT
  Age: 39 Year
  Sex: Female

DRUGS (16)
  1. UVADEX [Suspect]
     Active Substance: METHOXSALEN
     Indication: Chronic graft versus host disease in lung
     Dosage: UNKNOWN
     Route: 050
  2. UVADEX [Suspect]
     Active Substance: METHOXSALEN
     Dosage: UNKNOWN
     Route: 050
  3. UVADEX [Suspect]
     Active Substance: METHOXSALEN
     Dosage: UNKNOWN
     Route: 050
  4. UVADEX [Suspect]
     Active Substance: METHOXSALEN
     Dosage: UNKNOWN
     Route: 050
  5. IPRATROPIUM [Concomitant]
     Active Substance: IPRATROPIUM
     Indication: Obliterative bronchiolitis
     Dosage: UNKNOWN
  6. TIOTROPIUM [Concomitant]
     Active Substance: TIOTROPIUM
     Indication: Obliterative bronchiolitis
     Dosage: UNKNOWN
  7. ALBUTEROL [Concomitant]
     Active Substance: ALBUTEROL
     Indication: Obliterative bronchiolitis
     Dosage: UNKNOWN
  8. RUXOLITINIB [Concomitant]
     Active Substance: RUXOLITINIB
     Indication: Immunosuppression
  9. RUXOLITINIB [Concomitant]
     Active Substance: RUXOLITINIB
  10. RUXOLITINIB [Concomitant]
     Active Substance: RUXOLITINIB
  11. FLUTICASONE [Concomitant]
     Active Substance: FLUTICASONE
     Indication: Obliterative bronchiolitis
     Dosage: UNKNOWN
  12. MONTELUKAST [Concomitant]
     Active Substance: MONTELUKAST SODIUM
     Indication: Obliterative bronchiolitis
     Dosage: UNKNOWN
  13. OXYGEN [Concomitant]
     Active Substance: OXYGEN
     Indication: Obliterative bronchiolitis
  14. PREDNISOLONE [Concomitant]
     Active Substance: PREDNISOLONE
     Indication: Obliterative bronchiolitis
  15. PREDNISOLONE [Concomitant]
     Active Substance: PREDNISOLONE
  16. TACROLIMUS [Concomitant]
     Active Substance: TACROLIMUS
     Indication: Immunosuppression

REACTIONS (5)
  - Bronchopulmonary aspergillosis [Unknown]
  - Weight decreased [Unknown]
  - Chronic graft versus host disease in lung [Unknown]
  - Disease progression [Unknown]
  - Product use in unapproved indication [Unknown]
